FAERS Safety Report 11247771 (Version 1)
Quarter: 2015Q3

REPORT INFORMATION
  Report Type: Spontaneous
  Country: US (occurrence: US)
  Receive Date: 20150708
  Receipt Date: 20150708
  Transmission Date: 20151125
  Serious: Yes (Other)
  Sender: FDA-Public Use
  Company Number: US-BAYER-2015-367727

PATIENT
  Sex: Female

DRUGS (2)
  1. AVELOX [Suspect]
     Active Substance: MOXIFLOXACIN HYDROCHLORIDE
     Indication: NASOPHARYNGITIS
     Dosage: UNK
     Dates: start: 20110816
  2. AVELOX [Suspect]
     Active Substance: MOXIFLOXACIN HYDROCHLORIDE
     Indication: COUGH

REACTIONS (11)
  - Pain [None]
  - Fear [None]
  - Hypoaesthesia [None]
  - Paraesthesia [None]
  - Off label use [None]
  - Anxiety [None]
  - Injury [None]
  - Neuropathy peripheral [None]
  - Economic problem [None]
  - Quality of life decreased [None]
  - Emotional distress [None]
